FAERS Safety Report 14093962 (Version 2)
Quarter: 2017Q4

REPORT INFORMATION
  Report Type: Report from Study
  Country: US (occurrence: US)
  Receive Date: 20171016
  Receipt Date: 20171018
  Transmission Date: 20180321
  Serious: No
  Sender: FDA-Public Use
  Company Number: US-AMGEN-USASL2017133840

PATIENT
  Age: 77 Year
  Sex: Female

DRUGS (2)
  1. PROLIA [Suspect]
     Active Substance: DENOSUMAB
     Indication: VITAMIN D DEFICIENCY
     Dosage: 60 MG, UNK
     Route: 065
  2. PROLIA [Suspect]
     Active Substance: DENOSUMAB
     Indication: BONE DISORDER

REACTIONS (1)
  - Off label use [Unknown]
